FAERS Safety Report 25045466 (Version 2)
Quarter: 2025Q1

REPORT INFORMATION
  Report Type: Spontaneous
  Country: CN (occurrence: CN)
  Receive Date: 20250306
  Receipt Date: 20250311
  Transmission Date: 20250408
  Serious: Yes (Death, Hospitalization)
  Sender: PFIZER
  Company Number: CN-MLMSERVICE-20250303-PI428705-00270-1

PATIENT
  Age: 80 Year
  Sex: Female

DRUGS (7)
  1. METHYLPREDNISOLONE SODIUM SUCCINATE [Suspect]
     Active Substance: METHYLPREDNISOLONE SODIUM SUCCINATE
     Indication: Chronic obstructive pulmonary disease
     Dosage: 20 MG, 1X/DAY (IV, QD)
     Route: 042
  2. CEFOTAXIME [Concomitant]
     Active Substance: CEFOTAXIME SODIUM
     Indication: Anti-infective therapy
     Dosage: 2 G, 2X/DAY (IVGTT, Q12H)
     Route: 041
  3. BUDESONIDE [Concomitant]
     Active Substance: BUDESONIDE
     Indication: Bronchospasm
     Dosage: 2 MG, 2X/DAY (BID, NEBULIZED INHALATION)
     Route: 055
  4. TERBUTALINE [Concomitant]
     Active Substance: TERBUTALINE
     Indication: Bronchospasm
     Dosage: 5 MG, 2X/DAY (BID, NEBULIZED INHALATION)
     Route: 055
  5. TIOTROPIUM [Concomitant]
     Active Substance: TIOTROPIUM
     Route: 055
  6. IRBESARTAN [Concomitant]
     Active Substance: IRBESARTAN
  7. ATORVASTATIN [Concomitant]
     Active Substance: ATORVASTATIN

REACTIONS (4)
  - Pneumonia legionella [Fatal]
  - Candida infection [Recovered/Resolved]
  - Pseudomonas infection [Recovered/Resolved]
  - Off label use [Unknown]
